FAERS Safety Report 5799221-5 (Version None)
Quarter: 2008Q3

REPORT INFORMATION
  Report Type: 
  Country: None (occurrence: None)
  Receive Date: 20080702
  Receipt Date: 20080624
  Transmission Date: 20090109
  Serious: Yes (Other)
  Sender: FDA-Public Use
  Company Number: JP-PFIZER INC-2008042049

PATIENT
  Sex: Male

DRUGS (4)
  1. GABAPEN [Suspect]
     Indication: EPILEPSY
     Route: 048
  2. DEPAKENE [Suspect]
     Indication: EPILEPSY
     Route: 048
  3. PHENOBARBITAL TAB [Suspect]
     Indication: EPILEPSY
     Route: 048
  4. EXCEGRAN [Suspect]
     Indication: EPILEPSY

REACTIONS (4)
  - BLISTER [None]
  - IMPETIGO [None]
  - LEUKOCYTOCLASTIC VASCULITIS [None]
  - PURPURA [None]
